FAERS Safety Report 5930599-5 (Version None)
Quarter: 2008Q4

REPORT INFORMATION
  Report Type: 
  Country: None (occurrence: None)
  Receive Date: 20081027
  Receipt Date: 20081015
  Transmission Date: 20090506
  Serious: Yes (Hospitalization)
  Sender: FDA-Public Use
  Company Number: US-JNJFOC-20081004242

PATIENT
  Sex: Male
  Weight: 90.72 kg

DRUGS (9)
  1. FENTANYL TRANSDERMAL SYSTEM [Suspect]
     Route: 062
  2. FENTANYL TRANSDERMAL SYSTEM [Suspect]
     Indication: PAIN
     Route: 062
  3. DURAGESIC-100 [Suspect]
     Indication: PAIN
     Route: 062
  4. FENTANYL CITRATE [Suspect]
     Indication: PAIN
     Route: 062
  5. FLOMAX [Concomitant]
     Indication: PROSTATOMEGALY
     Route: 048
  6. PLAVIX [Concomitant]
     Indication: CORONARY ARTERIAL STENT INSERTION
     Route: 048
  7. NORCO [Concomitant]
     Indication: PAIN
     Dosage: DOSE 20-650MG STRENGTH 10-335MG
     Route: 048
  8. PROTONIX [Concomitant]
     Indication: PROPHYLAXIS AGAINST GASTROINTESTINAL ULCER
     Route: 048
  9. KLONOPIN [Concomitant]
     Indication: NEURALGIA
     Route: 048

REACTIONS (11)
  - APPLICATION SITE ERYTHEMA [None]
  - APPLICATION SITE IRRITATION [None]
  - APPLICATION SITE SCAB [None]
  - BACK PAIN [None]
  - CHEST PAIN [None]
  - CORONARY ARTERY BYPASS [None]
  - CORONARY ARTERY OCCLUSION [None]
  - DEPRESSION [None]
  - DRUG ADMINISTRATION ERROR [None]
  - SURGERY [None]
  - WRONG TECHNIQUE IN DRUG USAGE PROCESS [None]
